FAERS Safety Report 17014970 (Version 1)
Quarter: 2019Q4

REPORT INFORMATION
  Report Type: Spontaneous
  Country: US (occurrence: US)
  Receive Date: 20191108
  Receipt Date: 20191108
  Transmission Date: 20200122
  Serious: No
  Sender: FDA-Public Use
  Company Number: None

PATIENT
  Age: 17 Year
  Sex: Female
  Weight: 63 kg

DRUGS (3)
  1. Z PACK [Concomitant]
     Active Substance: AZITHROMYCIN DIHYDRATE
  2. EAR DROPS [Concomitant]
  3. OFLOXACIN OPTHALMIC SOLUTION [Suspect]
     Active Substance: OFLOXACIN
     Indication: EAR INFECTION
     Dosage: ?          QUANTITY:10 DROP(S);?
     Route: 001
     Dates: start: 20191102, end: 20191102

REACTIONS (6)
  - Product packaging confusion [None]
  - Incorrect product formulation administered [None]
  - Circumstance or information capable of leading to medication error [None]
  - Eye injury [None]
  - Incorrect route of product administration [None]
  - Product dispensing error [None]

NARRATIVE: CASE EVENT DATE: 20191102
